FAERS Safety Report 19076616 (Version 2)
Quarter: 2021Q2

REPORT INFORMATION
  Report Type: Spontaneous
  Country: US (occurrence: US)
  Receive Date: 20210331
  Receipt Date: 20210406
  Transmission Date: 20210717
  Serious: Yes (Other)
  Sender: FDA-Public Use
  Company Number: US-BLUEPRINT MEDICINES CORPORATION-SP-US-2021-000393

PATIENT
  Sex: Female

DRUGS (1)
  1. GAVRETO [Suspect]
     Active Substance: PRALSETINIB
     Indication: LUNG NEOPLASM MALIGNANT
     Route: 048
     Dates: start: 20210316

REACTIONS (11)
  - Constipation [Unknown]
  - Nausea [Unknown]
  - Dry mouth [Unknown]
  - Fatigue [Unknown]
  - Blood pressure increased [Unknown]
  - Alanine aminotransferase increased [Unknown]
  - Arthralgia [Unknown]
  - Dry skin [Unknown]
  - Renal impairment [Unknown]
  - Gingival swelling [Unknown]
  - Aspartate aminotransferase increased [Unknown]
